FAERS Safety Report 24773735 (Version 1)
Quarter: 2024Q4

REPORT INFORMATION
  Report Type: Spontaneous
  Country: KR (occurrence: KR)
  Receive Date: 20241225
  Receipt Date: 20241225
  Transmission Date: 20250115
  Serious: Yes (Other)
  Sender: ALEXION PHARMACEUTICALS
  Company Number: KR-AstraZeneca-CH-00770353A

PATIENT

DRUGS (4)
  1. IRESSA [Suspect]
     Active Substance: GEFITINIB
     Dosage: UNK
  2. IRESSA [Suspect]
     Active Substance: GEFITINIB
     Dosage: UNK
     Route: 048
  3. IRESSA [Suspect]
     Active Substance: GEFITINIB
     Dosage: UNK
  4. IRESSA [Suspect]
     Active Substance: GEFITINIB
     Dosage: UNK
     Route: 048

REACTIONS (5)
  - Renal impairment [Unknown]
  - Polyuria [Unknown]
  - Acne [Unknown]
  - Oedema mucosal [Unknown]
  - Rhinalgia [Unknown]
